FAERS Safety Report 5535470-9 (Version None)
Quarter: 2007Q4

REPORT INFORMATION
  Report Type: 
  Country: None (occurrence: None)
  Receive Date: 20071204
  Receipt Date: 20071204
  Transmission Date: 20080405
  Serious: Yes (Other)
  Sender: FDA-Public Use
  Company Number: None

PATIENT
  Sex: Male
  Weight: 92.9874 kg

DRUGS (1)
  1. CHANTIX [Suspect]
     Indication: SMOKING CESSATION THERAPY
     Dosage: 1 MG   1 FOR 4 DAYS; THEN INCREASE TO 2
     Dates: start: 20070908, end: 20071001

REACTIONS (4)
  - ANOREXIA [None]
  - ANXIETY [None]
  - APATHY [None]
  - DEPRESSION [None]
